FAERS Safety Report 5523082-2 (Version None)
Quarter: 2007Q4

REPORT INFORMATION
  Report Type: 
  Country: None (occurrence: None)
  Receive Date: 20071121
  Receipt Date: 20071120
  Transmission Date: 20080405
  Serious: Yes (Death)
  Sender: FDA-Public Use
  Company Number: BE-WYE-H01096807

PATIENT
  Sex: Male

DRUGS (4)
  1. GEMTUZUMAB OZOGAMICIN [Suspect]
     Indication: ACUTE MYELOID LEUKAEMIA
     Dosage: 5.75 MG (CUMULATIVE DOSE 7.25 MG) FREQUENCY NOT SPECIFIED
     Dates: start: 20070914, end: 20070921
  2. GEMTUZUMAB OZOGAMICIN [Suspect]
     Dosage: DOSE AND FREQUENCY  NOT SPECIFIED
     Dates: start: 20071010, end: 20071010
  3. GEMTUZUMAB OZOGAMICIN [Suspect]
     Dosage: 3.8 MG (MAINTENANCE) TOTAL 21.05 (DURING WHOLE TREATMENT).
     Route: 042
     Dates: start: 20071019
  4. PROLOPA [Concomitant]
     Dosage: DOSE AND FREQUENCY NOT PROVIDED
     Dates: start: 20071025, end: 20071025

REACTIONS (2)
  - GASTROINTESTINAL HAEMORRHAGE [None]
  - SEPSIS [None]
